FAERS Safety Report 20010006 (Version 1)
Quarter: 2021Q4

REPORT INFORMATION
  Report Type: Spontaneous
  Country: US (occurrence: US)
  Receive Date: 20211029
  Receipt Date: 20211029
  Transmission Date: 20220303
  Serious: Yes (Other)
  Sender: FDA-Public Use
  Company Number: None

PATIENT
  Age: 47 Year
  Sex: Male

DRUGS (29)
  1. GABAPENTIN [Suspect]
     Active Substance: GABAPENTIN
     Indication: Phantom limb syndrome
     Dosage: 1200 MILLIGRAM, TID
     Route: 048
  2. GABAPENTIN [Suspect]
     Active Substance: GABAPENTIN
     Indication: Neuralgia
  3. MEXILETINE [Suspect]
     Active Substance: MEXILETINE
     Indication: Neuralgia
     Dosage: UNK, PER DAY
     Route: 048
  4. MEXILETINE [Suspect]
     Active Substance: MEXILETINE
     Indication: Phantom limb syndrome
  5. PREGABALIN [Suspect]
     Active Substance: PREGABALIN
     Indication: Neuralgia
     Dosage: UNK
     Route: 065
  6. PREGABALIN [Suspect]
     Active Substance: PREGABALIN
     Indication: Phantom limb syndrome
  7. KETAMINE [Suspect]
     Active Substance: KETAMINE
     Indication: Neuralgia
     Dosage: 400-600 MG PER DAY
     Route: 048
  8. KETAMINE [Suspect]
     Active Substance: KETAMINE
     Indication: Phantom limb syndrome
     Dosage: 0.5 MILLIGRAM/KILOGRAM, EVERY HOUR, FOR 5-7 DAYS
     Route: 042
  9. KETAMINE [Suspect]
     Active Substance: KETAMINE
     Dosage: UNK
     Route: 060
  10. KETAMINE [Suspect]
     Active Substance: KETAMINE
     Dosage: 300-600 MG PER DAY
     Route: 048
  11. LIDOCAINE [Suspect]
     Active Substance: LIDOCAINE
     Indication: Neuralgia
     Dosage: UNK, PATCH
     Route: 065
  12. LIDOCAINE [Suspect]
     Active Substance: LIDOCAINE
     Indication: Phantom limb syndrome
     Dosage: UNK
     Route: 042
  13. EFFEXOR [Suspect]
     Active Substance: VENLAFAXINE HYDROCHLORIDE
     Indication: Antidepressant therapy
     Dosage: UNK, DAILY
     Route: 065
  14. EFFEXOR [Suspect]
     Active Substance: VENLAFAXINE HYDROCHLORIDE
     Indication: Phantom limb syndrome
  15. EFFEXOR [Suspect]
     Active Substance: VENLAFAXINE HYDROCHLORIDE
     Indication: Neuralgia
  16. CANNABIDIOL [Suspect]
     Active Substance: CANNABIDIOL
     Indication: Neuralgia
     Dosage: UNK, VAPORISED
     Route: 055
  17. CANNABIDIOL [Suspect]
     Active Substance: CANNABIDIOL
     Indication: Phantom limb syndrome
     Dosage: UNK
     Route: 048
  18. OXYCODONE [Suspect]
     Active Substance: OXYCODONE
     Indication: Neuralgia
     Dosage: UNK
     Route: 065
  19. OXYCODONE [Suspect]
     Active Substance: OXYCODONE
     Indication: Phantom limb syndrome
  20. CYMBALTA [Suspect]
     Active Substance: DULOXETINE HYDROCHLORIDE
     Indication: Antidepressant therapy
     Dosage: UNK
     Route: 065
  21. CYMBALTA [Suspect]
     Active Substance: DULOXETINE HYDROCHLORIDE
     Indication: Phantom limb syndrome
  22. CYMBALTA [Suspect]
     Active Substance: DULOXETINE HYDROCHLORIDE
     Indication: Neuralgia
  23. HYDROMORPHONE [Suspect]
     Active Substance: HYDROMORPHONE
     Indication: Neuralgia
     Dosage: 24-40 MG/DAY (160-280 MME ORAL MORPHINE)
     Route: 048
  24. HYDROMORPHONE [Suspect]
     Active Substance: HYDROMORPHONE
     Indication: Phantom limb syndrome
     Dosage: UNK
     Route: 042
  25. ROPIVACAINE. [Suspect]
     Active Substance: ROPIVACAINE HYDROCHLORIDE
     Indication: Local anaesthesia
     Dosage: UNK, SUCCESSFUL ONCE
     Route: 065
  26. ROPIVACAINE. [Suspect]
     Active Substance: ROPIVACAINE HYDROCHLORIDE
     Indication: Neuralgia
     Dosage: UNK, FAILURE ONCE
     Route: 065
  27. ROPIVACAINE. [Suspect]
     Active Substance: ROPIVACAINE HYDROCHLORIDE
     Indication: Phantom limb syndrome
  28. NORCO [Suspect]
     Active Substance: ACETAMINOPHEN\HYDROCODONE BITARTRATE
     Indication: Neuralgia
     Dosage: UNK
     Route: 065
  29. NORCO [Suspect]
     Active Substance: ACETAMINOPHEN\HYDROCODONE BITARTRATE
     Indication: Phantom limb syndrome

REACTIONS (2)
  - Drug ineffective [Unknown]
  - Tinnitus [Unknown]
